FAERS Safety Report 6999273-0 (Version None)
Quarter: 2010Q3

REPORT INFORMATION
  Report Type: 
  Country: None (occurrence: None)
  Receive Date: 20100920
  Receipt Date: 20090806
  Transmission Date: 20110219
  Serious: No
  Sender: FDA-Public Use
  Company Number: US-ASTRAZENECA-2009UW04252

PATIENT
  Age: 463 Month
  Sex: Female

DRUGS (2)
  1. SEROQUEL [Suspect]
     Indication: DEPRESSION
     Route: 048
     Dates: start: 20060727, end: 20070313
  2. RISPERDAL [Suspect]
     Dosage: 2 TO 3 MG
     Dates: start: 20030728, end: 20030804

REACTIONS (1)
  - TYPE 2 DIABETES MELLITUS [None]
